FAERS Safety Report 5794625-9 (Version None)
Quarter: 2008Q2

REPORT INFORMATION
  Report Type: 
  Country: None (occurrence: None)
  Receive Date: 20080627
  Receipt Date: 20080627
  Transmission Date: 20081010
  Serious: Yes (Hospitalization)
  Sender: FDA-Public Use
  Company Number: None

PATIENT
  Sex: Female
  Weight: 111.1313 kg

DRUGS (6)
  1. HYDROMORPHONE HCL [Suspect]
     Indication: PAIN
     Dosage: 4 MG PO QID PRN
     Route: 048
     Dates: start: 20071002
  2. CARISOPRODOL [Suspect]
     Indication: MUSCLE SPASMS
     Dosage: 350MG PO QID
     Route: 048
     Dates: start: 20071002
  3. PROTONIX [Concomitant]
  4. M.V.I. [Concomitant]
  5. COLACE [Concomitant]
  6. MAGCITRATE [Concomitant]

REACTIONS (3)
  - CONSTIPATION [None]
  - FAECALOMA [None]
  - RECTAL HAEMORRHAGE [None]
